FAERS Safety Report 6857439-4 (Version None)
Quarter: 2010Q3

REPORT INFORMATION
  Report Type: 
  Country: None (occurrence: None)
  Receive Date: 20100719
  Receipt Date: 20080122
  Transmission Date: 20110219
  Serious: No
  Sender: FDA-Public Use
  Company Number: US-PFIZER INC-2008008898

PATIENT
  Sex: Male
  Weight: 75 kg

DRUGS (7)
  1. CHANTIX [Suspect]
     Indication: SMOKING CESSATION THERAPY
     Dates: start: 20080115, end: 20080122
  2. LOVASTATIN [Concomitant]
     Indication: BLOOD CHOLESTEROL INCREASED
  3. LISINOPRIL [Concomitant]
     Indication: HYPERTENSION
  4. DILTIAZEM [Concomitant]
     Indication: HYPERTENSION
  5. CENTRUM SILVER [Concomitant]
  6. ACETYLSALICYLIC ACID [Concomitant]
  7. CHONDROITIN/GLUCOSAMINE/METHYLSULFONYLMETHANE [Concomitant]
     Indication: ARTHROPATHY

REACTIONS (2)
  - HYPERAESTHESIA [None]
  - MYALGIA [None]
